FAERS Safety Report 9464931 (Version 4)
Quarter: 2013Q4

REPORT INFORMATION
  Report Type: Spontaneous
  Country: DE (occurrence: DE)
  Receive Date: 20130819
  Receipt Date: 20131126
  Transmission Date: 20140711
  Serious: Yes (Other)
  Sender: FDA-Public Use
  Company Number: DE-BRISTOL-MYERS SQUIBB COMPANY-19194877

PATIENT
  Age: 46 Year
  Sex: Female
  Weight: 72 kg

DRUGS (3)
  1. YERVOY [Suspect]
     Indication: MALIGNANT MELANOMA
     Dosage: 2ND:04JUL13
     Dates: start: 20130613
  2. VITAMIN D3 [Concomitant]
  3. CALCIUM [Concomitant]

REACTIONS (6)
  - Enterocolitis [Recovering/Resolving]
  - Simple partial seizures [Not Recovered/Not Resolved]
  - Iritis [Recovering/Resolving]
  - Pericardial effusion [Unknown]
  - Myocarditis [Unknown]
  - Haemolysis [Not Recovered/Not Resolved]
